FAERS Safety Report 9178323 (Version 1)
Quarter: 2012Q4

REPORT INFORMATION
  Report Type: 
  Country: BR (occurrence: BR)
  Receive Date: 20121029
  Receipt Date: 20121029
  Transmission Date: 20130627
  Serious: Yes (Other)
  Sender: FDA-Public Use
  Company Number: BR-PFIZER INC-2012268812

PATIENT
  Age: 64 Year
  Sex: Female

DRUGS (2)
  1. CITALOR [Suspect]
     Indication: CARDIAC INSUFFICIENCY
     Dosage: 20 mg, once daily
     Route: 048
     Dates: start: 2011
  2. SELOZOK [Concomitant]
     Indication: BLOOD PRESSURE HIGH
     Dosage: UNK

REACTIONS (2)
  - Cardiac valve disease [Unknown]
  - Thyroid disorder [Unknown]
